FAERS Safety Report 5324856-3 (Version None)
Quarter: 2007Q2

REPORT INFORMATION
  Report Type: 
  Country: None (occurrence: None)
  Receive Date: 20070515
  Receipt Date: 20070509
  Transmission Date: 20071010
  Serious: Yes (Death, Other)
  Sender: FDA-Public Use
  Company Number: US-ELI_LILLY_AND_COMPANY-US200705002622

PATIENT
  Age: 55 Year
  Sex: Male

DRUGS (1)
  1. XIGRIS [Suspect]
     Indication: SEPSIS
     Route: 042

REACTIONS (3)
  - ACIDOSIS [None]
  - DEATH [None]
  - HYPOVENTILATION [None]
